FAERS Safety Report 9257289 (Version 1)
Quarter: 2013Q1

REPORT INFORMATION
  Report Type: Spontaneous
  Country: US (occurrence: None)
  Receive Date: 20121212
  Receipt Date: 20121212
  Transmission Date: 20140127
  Serious: No
  Sender: FDA-Public Use
  Company Number: 1210USA002319

PATIENT
  Sex: Female

DRUGS (6)
  1. VICTRELIS [Suspect]
     Indication: HEPATITIS C
     Dosage: 800 MG, TID, ORAL
     Route: 048
     Dates: start: 20120829
  2. PEGASYS [Suspect]
     Indication: HEPATITIS C
     Dates: start: 20120729
  3. RIBAVIRIN [Suspect]
     Dates: start: 20120729
  4. ENALAPRIL MALEATE (ENALAPRIL MALEATE) TABLET [Concomitant]
  5. METOPROLOL (METOPROLOL) [Concomitant]
  6. HYDROCHLOROTHIAZIDE (HYDROCHLOROTHIAZIDE) [Concomitant]

REACTIONS (4)
  - Depressed mood [None]
  - Crying [None]
  - Emotional distress [None]
  - Malaise [None]
